FAERS Safety Report 5344903-2 (Version None)
Quarter: 2007Q2

REPORT INFORMATION
  Report Type: 
  Country: None (occurrence: None)
  Receive Date: 20070416
  Receipt Date: 20070122
  Transmission Date: 20071010
  Serious: No
  Sender: FDA-Public Use
  Company Number: 2007SP000243

PATIENT
  Age: 66 Year
  Sex: Female
  Weight: 62.5964 kg

DRUGS (5)
  1. LUNESTA [Suspect]
     Indication: INSOMNIA
     Dosage: 3 MG;HS;ORAL
     Route: 048
     Dates: start: 20060101
  2. BETA BLOCKING AGENTS [Concomitant]
  3. CELEBREX [Concomitant]
  4. FOSAMAX [Concomitant]
  5. MULTIVITAMIN [Concomitant]

REACTIONS (1)
  - DRUG EFFECT DECREASED [None]
